FAERS Safety Report 9175531 (Version 3)
Quarter: 2014Q1

REPORT INFORMATION
  Report Type: Report from Study
  Country: CA (occurrence: CA)
  Receive Date: 20130320
  Receipt Date: 20140130
  Transmission Date: 20141002
  Serious: Yes (Hospitalization)
  Sender: FDA-Public Use
  Company Number: CA-ROCHE-1203815

PATIENT
  Age: 58 Year
  Sex: Female
  Weight: 47.6 kg

DRUGS (12)
  1. RITUXAN [Suspect]
     Indication: RHEUMATOID ARTHRITIS
     Route: 042
     Dates: start: 20110615
  2. GABAPENTIN [Suspect]
     Indication: PRODUCT USED FOR UNKNOWN INDICATION
     Route: 065
  3. ARAVA [Suspect]
     Indication: PRODUCT USED FOR UNKNOWN INDICATION
     Route: 065
  4. DIPHENHYDRAMINE HCL [Concomitant]
     Indication: PREMEDICATION
     Route: 048
     Dates: start: 20110615
  5. ACETAMINOPHEN [Concomitant]
     Indication: PREMEDICATION
     Route: 048
     Dates: start: 20110615
  6. METHYLPREDNISOLONE [Concomitant]
     Indication: PREMEDICATION
     Route: 042
     Dates: start: 20110615
  7. ZOPICLONE [Concomitant]
  8. PANTOLOC [Concomitant]
  9. EZETROL [Concomitant]
  10. VITAMIN C [Concomitant]
  11. FLAXSEED OIL [Concomitant]
  12. SALOFALK [Concomitant]

REACTIONS (5)
  - Dehydration [Unknown]
  - Infection [Unknown]
  - Crohn^s disease [Unknown]
  - Rheumatoid arthritis [Not Recovered/Not Resolved]
  - Weight decreased [Recovered/Resolved]
